FAERS Safety Report 8736198 (Version 3)
Quarter: 2013Q1

REPORT INFORMATION
  Report Type: Spontaneous
  Country: US (occurrence: US)
  Receive Date: 20120822
  Receipt Date: 20130129
  Transmission Date: 20140127
  Serious: Yes (Hospitalization)
  Sender: FDA-Public Use
  Company Number: US-B.I. PHARMACEUTICALS,INC./RIDGEFIELD-2012-BP-19627BP

PATIENT
  Age: 77 Year
  Sex: Male
  Weight: 89.61 kg

DRUGS (9)
  1. PRADAXA [Suspect]
     Indication: ANTICOAGULANT THERAPY
     Dosage: 300 MG
     Dates: start: 20120102, end: 20120404
  2. PRADAXA [Suspect]
     Indication: ATRIAL FIBRILLATION
  3. CITALOPRAM [Concomitant]
     Dosage: 20 MG
     Dates: start: 20120302
  4. AMIODARONE [Concomitant]
     Dosage: 200 MG
     Dates: start: 20120206
  5. METOPROLOL [Concomitant]
     Dosage: 200 MG
     Dates: start: 19930410
  6. TRAZADONE [Concomitant]
     Dosage: 200 MG
     Dates: start: 20120102
  7. BENAZEPRIL [Concomitant]
     Dosage: 40 MG
     Dates: start: 19930410
  8. TAMSULOSIN [Concomitant]
     Dosage: 0.4 MG
     Dates: start: 20120103
  9. ALLOPURINOL [Concomitant]
     Dosage: 300 MG
     Dates: start: 19990610

REACTIONS (1)
  - Gastrointestinal haemorrhage [Unknown]
